FAERS Safety Report 5156056-4 (Version None)
Quarter: 2006Q4

REPORT INFORMATION
  Report Type: 
  Country: None (occurrence: None)
  Receive Date: 20061122
  Receipt Date: 20061110
  Transmission Date: 20070319
  Serious: Yes (Other)
  Sender: FDA-Public Use
  Company Number: CA-ELI_LILLY_AND_COMPANY-CA200611003675

PATIENT
  Age: 79 Year
  Sex: Female

DRUGS (6)
  1. FORTEO [Suspect]
     Indication: OSTEOPOROSIS
     Dosage: 20 UG, DAILY (1/D)
     Dates: start: 20061012
  2. FELODIPINE [Concomitant]
  3. CALCIUM [Concomitant]
  4. VITAMIN D [Concomitant]
  5. HYDROMORPHONE HYDROCHLORIDE [Concomitant]
  6. LORAZEPAM [Concomitant]

REACTIONS (3)
  - DECREASED APPETITE [None]
  - NAUSEA [None]
  - RENAL IMPAIRMENT [None]
